FAERS Safety Report 10747507 (Version 2)
Quarter: 2015Q2

REPORT INFORMATION
  Report Type: Spontaneous
  Country: US (occurrence: US)
  Receive Date: 20150129
  Receipt Date: 20150420
  Transmission Date: 20150821
  Serious: No
  Sender: FDA-Public Use
  Company Number: US-BIOGENIDEC-2015BI010531

PATIENT
  Age: 52 Year
  Sex: Male

DRUGS (1)
  1. AVONEX [Suspect]
     Active Substance: INTERFERON BETA-1A
     Indication: MULTIPLE SCLEROSIS
     Route: 030
     Dates: start: 20050723

REACTIONS (13)
  - Crying [Recovered/Resolved]
  - Emotional disorder [Unknown]
  - Anxiety [Recovered/Resolved]
  - Personality disorder [Recovered/Resolved]
  - Pyrexia [Recovered/Resolved]
  - Suicidal ideation [Recovered/Resolved]
  - Influenza [Recovered/Resolved]
  - Cough [Not Recovered/Not Resolved]
  - Tendonitis [Unknown]
  - Adverse event [Recovered/Resolved]
  - Depressed mood [Recovered/Resolved]
  - Aggression [Recovered/Resolved]
  - Tendon operation [Recovered/Resolved]

NARRATIVE: CASE EVENT DATE: 201401
